FAERS Safety Report 9808017 (Version 2)
Quarter: 2014Q1

REPORT INFORMATION
  Report Type: Spontaneous
  Country: RO (occurrence: RO)
  Receive Date: 20140110
  Receipt Date: 20140114
  Transmission Date: 20141002
  Serious: Yes (Death)
  Sender: FDA-Public Use
  Company Number: RO-JNJFOC-20140103739

PATIENT
  Age: 42 Year
  Sex: Male

DRUGS (5)
  1. REMICADE [Suspect]
     Indication: PSORIASIS
     Dosage: 5 BOTTLES
     Route: 042
     Dates: start: 20110621
  2. REMICADE [Suspect]
     Indication: PSORIASIS
     Dosage: 5 BOTTLES
     Route: 042
     Dates: start: 20131113, end: 20131113
  3. BISOPROLOL [Concomitant]
     Indication: HYPERTENSION
     Route: 048
  4. AFLEN [Concomitant]
     Route: 048
  5. ATORIN [Concomitant]
     Route: 048

REACTIONS (1)
  - Cardio-respiratory arrest [Fatal]
